FAERS Safety Report 9888000 (Version 1)
Quarter: 2014Q1

REPORT INFORMATION
  Report Type: Report from Study
  Country: KR (occurrence: KR)
  Receive Date: 20140211
  Receipt Date: 20140211
  Transmission Date: 20141002
  Serious: Yes (Hospitalization)
  Sender: FDA-Public Use
  Company Number: KR-JNJFOC-20140118362

PATIENT
  Age: 16 Year
  Sex: Male
  Weight: 83.1 kg

DRUGS (2)
  1. REMICADE [Suspect]
     Indication: CROHN^S DISEASE
     Dosage: 5TH REMICADE THERAPY
     Route: 042
     Dates: start: 20121005, end: 20130511
  2. IMMUTHERA [Concomitant]
     Indication: CROHN^S DISEASE
     Route: 048
     Dates: start: 20120712, end: 20120920

REACTIONS (1)
  - Haemorrhoids [Recovered/Resolved]
